FAERS Safety Report 9333509 (Version 2)
Quarter: 2013Q3

REPORT INFORMATION
  Report Type: Spontaneous
  Country: US (occurrence: None)
  Receive Date: 20130604
  Receipt Date: 20130813
  Transmission Date: 20140515
  Serious: Yes (Other)
  Sender: FDA-Public Use
  Company Number: 2013AP005581

PATIENT
  Age: 51 Year
  Sex: Female

DRUGS (3)
  1. CYCLOSPORINE [Suspect]
     Indication: BIRDSHOT CHORIORETINOPATHY
  2. CELLCEPT [Suspect]
     Indication: BIRDSHOT CHORIORETINOPATHY
  3. PREDNISONE [Concomitant]

REACTIONS (1)
  - Neuropathy peripheral [None]
